FAERS Safety Report 11198350 (Version 1)
Quarter: 2015Q2

REPORT INFORMATION
  Report Type: Spontaneous
  Country: US (occurrence: None)
  Receive Date: 20150615
  Receipt Date: 20150615
  Transmission Date: 20150821
  Serious: Yes (Disabling)
  Sender: FDA-Public Use
  Company Number: None

PATIENT
  Age: 47 Year
  Sex: Female
  Weight: 61.24 kg

DRUGS (3)
  1. LEVOXYTHROXINE [Concomitant]
  2. DAILY VITAMIN [Concomitant]
     Active Substance: VITAMINS
  3. CIPROFLOXACIN. [Suspect]
     Active Substance: CIPROFLOXACIN
     Indication: SINUSITIS
     Dosage: 2 PILLS
     Route: 048
     Dates: start: 20150517, end: 20150521

REACTIONS (8)
  - Diarrhoea [None]
  - Pain [None]
  - Paraesthesia [None]
  - Fatigue [None]
  - Arthropathy [None]
  - Depression [None]
  - Disorientation [None]
  - Dizziness [None]

NARRATIVE: CASE EVENT DATE: 20150518
